FAERS Safety Report 5274147-4 (Version None)
Quarter: 2007Q1

REPORT INFORMATION
  Report Type: 
  Country: None (occurrence: None)
  Receive Date: 20070323
  Receipt Date: 20070314
  Transmission Date: 20070707
  Serious: Yes (Hospitalization)
  Sender: FDA-Public Use
  Company Number: 2007CG00437

PATIENT
  Age: 45 Year
  Sex: Male
  Weight: 48 kg

DRUGS (7)
  1. NEXIUM [Suspect]
     Route: 048
  2. SUTENT [Suspect]
     Indication: RENAL CANCER METASTATIC
     Route: 048
     Dates: start: 20060201, end: 20060101
  3. SUTENT [Suspect]
     Route: 048
     Dates: start: 20060101, end: 20070101
  4. SUTENT [Suspect]
     Route: 048
     Dates: start: 20070101
  5. PREVISCAN [Suspect]
     Indication: PULMONARY EMBOLISM
     Route: 048
  6. LAROXYL [Suspect]
     Route: 048
  7. SOLU-MEDROL [Suspect]
     Route: 051
     Dates: start: 20070131, end: 20070223

REACTIONS (4)
  - DERMATITIS EXFOLIATIVE [None]
  - DRY SKIN [None]
  - ERYTHEMA [None]
  - SKIN EXFOLIATION [None]
